FAERS Safety Report 19455733 (Version 1)
Quarter: 2021Q2

REPORT INFORMATION
  Report Type: Spontaneous
  Country: US (occurrence: US)
  Receive Date: 20210624
  Receipt Date: 20210624
  Transmission Date: 20210717
  Serious: No
  Sender: FDA-Public Use
  Company Number: US-BRACCO-2021US01509

PATIENT
  Age: 74 Year
  Sex: Male

DRUGS (9)
  1. METFORMIN [Concomitant]
     Active Substance: METFORMIN HYDROCHLORIDE
  2. NORMAL SALINE [Concomitant]
     Active Substance: SODIUM CHLORIDE
     Indication: MAGNETIC RESONANCE IMAGING ABDOMINAL
     Dosage: UNK
     Dates: start: 20210415, end: 20210415
  3. INSULIN [Concomitant]
     Active Substance: INSULIN NOS
  4. PROHANCE [Suspect]
     Active Substance: GADOTERIDOL
     Indication: MAGNETIC RESONANCE IMAGING ABDOMINAL
     Dosage: 14 ML
     Dates: start: 20210415, end: 20210415
  5. CARBIDOPA. [Concomitant]
     Active Substance: CARBIDOPA
  6. DULAGLUTIDE. [Concomitant]
     Active Substance: DULAGLUTIDE
  7. EZETIMIBE. [Concomitant]
     Active Substance: EZETIMIBE
  8. POTASSIUM [Concomitant]
     Active Substance: POTASSIUM
  9. PRAVASTATIN. [Concomitant]
     Active Substance: PRAVASTATIN

REACTIONS (3)
  - Skin discolouration [Recovering/Resolving]
  - Extravasation [Recovering/Resolving]
  - Drug ineffective [Unknown]

NARRATIVE: CASE EVENT DATE: 20210415
